FAERS Safety Report 5779215-6 (Version None)
Quarter: 2008Q2

REPORT INFORMATION
  Report Type: 
  Country: None (occurrence: None)
  Receive Date: 20080619
  Receipt Date: 20080612
  Transmission Date: 20081010
  Serious: Yes (Death)
  Sender: FDA-Public Use
  Company Number: JP-ASTRAZENECA-2008SE03085

PATIENT
  Age: 70 Year
  Sex: Male

DRUGS (3)
  1. BLOPRESS [Suspect]
     Indication: HYPERTENSION
     Route: 048
     Dates: start: 20070404, end: 20070417
  2. GLYCEROL 2.6% [Concomitant]
     Indication: CEREBRAL HAEMORRHAGE
     Route: 042
     Dates: start: 20070403, end: 20070413
  3. CALCIUM CHANNEL BLOCKERS [Concomitant]
     Indication: HYPERTENSION
     Route: 042
     Dates: start: 20070403, end: 20070407

REACTIONS (1)
  - GASTROINTESTINAL HAEMORRHAGE [None]
